FAERS Safety Report 7769330-X (Version None)
Quarter: 2011Q3

REPORT INFORMATION
  Report Type: 
  Country: None (occurrence: None)
  Receive Date: 20110922
  Receipt Date: 20100826
  Transmission Date: 20111222
  Serious: No
  Sender: FDA-Public Use
  Company Number: US-ASTRAZENECA-2010SE40189

PATIENT
  Age: 20027 Day
  Sex: Female

DRUGS (4)
  1. ADVIL LIQUI-GELS [Concomitant]
     Indication: HEADACHE
     Dosage: AS REQUIRED
     Route: 048
  2. SEROQUEL XR [Suspect]
     Indication: DEPRESSION
     Route: 048
     Dates: start: 20100201
  3. SEROQUEL XR [Suspect]
     Indication: MOOD SWINGS
     Route: 048
     Dates: start: 20100201
  4. FIORICET [Concomitant]
     Indication: MIGRAINE
     Dosage: AS REQUIRED
     Route: 048

REACTIONS (2)
  - FALL [None]
  - MIGRAINE [None]
